FAERS Safety Report 25502799 (Version 2)
Quarter: 2025Q3

REPORT INFORMATION
  Report Type: Report from Study
  Country: CA (occurrence: CA)
  Receive Date: 20250702
  Receipt Date: 20250716
  Transmission Date: 20251020
  Serious: Yes (Hospitalization, Other)
  Sender: SAMSUNG BIOEPIS
  Company Number: CA-SAMSUNG BIOEPIS-SB-2025-22599

PATIENT
  Age: 44 Year
  Sex: Female

DRUGS (3)
  1. ETANERCEPT [Suspect]
     Active Substance: ETANERCEPT
     Indication: Ankylosing spondylitis
     Dosage: RESTARTED BRENZYS AGAIN ON 29-JUN-2025
     Dates: start: 20230803
  2. ETANERCEPT [Suspect]
     Active Substance: ETANERCEPT
     Dosage: RESTARTED BRENZYS AGAIN ON 29-JUN-2025
     Dates: start: 20250629
  3. ETANERCEPT [Suspect]
     Active Substance: ETANERCEPT
     Dosage: RESTARTED BRENZYS AGAIN ON 29-JUN-2025
     Dates: start: 20250601

REACTIONS (4)
  - Myocarditis [Unknown]
  - Carditis [Unknown]
  - Ankylosing spondylitis [Unknown]
  - Therapeutic response shortened [Unknown]

NARRATIVE: CASE EVENT DATE: 20250602
